FAERS Safety Report 9357600 (Version 1)
Quarter: 2013Q2

REPORT INFORMATION
  Report Type: Spontaneous
  Country: FR (occurrence: None)
  Receive Date: 20130617
  Receipt Date: 20130617
  Transmission Date: 20140414
  Serious: Yes (Hospitalization)
  Sender: FDA-Public Use
  Company Number: 1579565

PATIENT
  Age: 82 Year
  Sex: Male

DRUGS (8)
  1. GEMCITABINE HYDROCHLORIDE [Suspect]
     Indication: PANCREATIC CARCINOMA
     Route: 042
     Dates: start: 20121213, end: 20121213
  2. METHYLPREDNISOLONE [Suspect]
     Indication: PANCREATIC CARCINOMA
     Route: 042
     Dates: start: 20121213, end: 20121213
  3. JANUMET [Suspect]
  4. BISOPROLOL [Suspect]
  5. ALLOPURINOL [Suspect]
  6. ALFUZOSINE [Suspect]
  7. CLOPIDOGREL [Suspect]
  8. LANTUS [Suspect]

REACTIONS (6)
  - Rhabdomyolysis [None]
  - Haematemesis [None]
  - Right ventricular failure [None]
  - Haemoglobin decreased [None]
  - Haematocrit decreased [None]
  - Blood albumin decreased [None]
